FAERS Safety Report 8831066 (Version 1)
Quarter: 2012Q4

REPORT INFORMATION
  Report Type: 
  Country: US (occurrence: US)
  Receive Date: 20121009
  Receipt Date: 20121009
  Transmission Date: 20130627
  Serious: Yes (Other)
  Sender: FDA-Public Use
  Company Number: PHEH2012US019633

PATIENT
  Sex: Female
  Weight: 69.84 kg

DRUGS (1)
  1. ZOMETA [Suspect]
     Dosage: 1 DF, QMO
     Dates: start: 2006, end: 200811

REACTIONS (1)
  - Osteonecrosis of jaw [Unknown]
